FAERS Safety Report 8486951-X (Version None)
Quarter: 2012Q3

REPORT INFORMATION
  Report Type: 
  Country: None (occurrence: None)
  Receive Date: 20120704
  Receipt Date: 20120619
  Transmission Date: 20120928
  Serious: Yes (Other)
  Sender: FDA-Public Use
  Company Number: CHPA2012US013468

PATIENT
  Age: 81 Year
  Sex: Female

DRUGS (1)
  1. EXCEDRIN EXTRA STRENGTH TABLETS [Suspect]
     Indication: PAIN
     Dosage: AS DIRECTED
     Route: 048

REACTIONS (4)
  - TENDONITIS [None]
  - FALL [None]
  - UPPER LIMB FRACTURE [None]
  - MUSCLE STRAIN [None]
